FAERS Safety Report 5493568-8 (Version None)
Quarter: 2007Q4

REPORT INFORMATION
  Report Type: 
  Country: None (occurrence: None)
  Receive Date: 20071012
  Receipt Date: 20071012
  Transmission Date: 20080405
  Serious: Yes (Other)
  Sender: FDA-Public Use
  Company Number: 2007326042

PATIENT
  Sex: Female

DRUGS (1)
  1. ROGAINE [Suspect]
     Indication: ALOPECIA
     Dosage: REGULAR DOSAGE, TOPICAL
     Route: 061
     Dates: start: 20070630, end: 20070704

REACTIONS (2)
  - GENERALISED OEDEMA [None]
  - SWELLING FACE [None]
